FAERS Safety Report 8163349-5 (Version None)
Quarter: 2012Q1

REPORT INFORMATION
  Report Type: 
  Country: None (occurrence: None)
  Receive Date: 20120224
  Receipt Date: 20120221
  Transmission Date: 20120608
  Serious: Yes (Life-Threatening, Hospitalization, Disabling, Other)
  Sender: FDA-Public Use
  Company Number: GB-B.I. PHARMACEUTICALS,INC./RIDGEFIELD-2012-UK-00282UK

PATIENT
  Age: 81 Year
  Sex: Male

DRUGS (5)
  1. ACETAMINOPHEN [Concomitant]
  2. ZOPICLONE [Concomitant]
  3. PRADAXA [Suspect]
     Indication: THROMBOSIS PROPHYLAXIS
     Dosage: 150 MG
     Route: 048
     Dates: start: 20120109, end: 20120130
  4. DICLOFENAC SODIUM [Concomitant]
  5. CODEINE PHOSPHATE [Concomitant]

REACTIONS (1)
  - DEEP VEIN THROMBOSIS [None]
